FAERS Safety Report 21273437 (Version 1)
Quarter: 2022Q3

REPORT INFORMATION
  Report Type: Spontaneous
  Country: CA (occurrence: CA)
  Receive Date: 20220831
  Receipt Date: 20220831
  Transmission Date: 20221027
  Serious: Yes (Other)
  Sender: FDA-Public Use
  Company Number: CA-SA-SAC20220829001572

PATIENT
  Age: 73 Year
  Sex: Female

DRUGS (10)
  1. PRALUENT [Suspect]
     Active Substance: ALIROCUMAB
     Indication: Product used for unknown indication
     Dosage: UNK
     Route: 058
  2. VAXZEVRIA [Suspect]
     Active Substance: AZD-1222
     Indication: Product used for unknown indication
     Dosage: CONTAINS 10 DOSES OF 0.5ML
  3. AMLODIPINE MESYLATE [Concomitant]
     Active Substance: AMLODIPINE MESYLATE
     Dosage: UNKNOWN
  4. BECLOMETHASONE [Concomitant]
     Active Substance: BECLOMETHASONE
     Dosage: UNKNOWN
  5. CALCIUM [Concomitant]
     Active Substance: CALCIUM
     Dosage: UNKNOWN
  6. FENOFIBRATE [Concomitant]
     Active Substance: FENOFIBRATE
     Dosage: UNKNOWN
  7. MESTINON [Concomitant]
     Active Substance: PYRIDOSTIGMINE BROMIDE
     Dosage: UNKNOWN
  8. PANTOPRAZOLE SODIUM [Concomitant]
     Active Substance: PANTOPRAZOLE SODIUM
     Dosage: UNKNOWN
  9. TYLENOL [Concomitant]
     Active Substance: ACETAMINOPHEN
     Dosage: UNKNOWN
  10. VITAMIN D NOS [Concomitant]
     Active Substance: VITAMIN D NOS
     Dosage: UNKNOWN

REACTIONS (7)
  - Arthralgia [Not Recovered/Not Resolved]
  - Blood glucose increased [Not Recovered/Not Resolved]
  - Gait disturbance [Not Recovered/Not Resolved]
  - Myasthenia gravis [Not Recovered/Not Resolved]
  - Pain [Not Recovered/Not Resolved]
  - Influenza like illness [Not Recovered/Not Resolved]
  - Rhinorrhoea [Not Recovered/Not Resolved]
